FAERS Safety Report 15729448 (Version 2)
Quarter: 2019Q2

REPORT INFORMATION
  Report Type: Spontaneous
  Country: US (occurrence: US)
  Receive Date: 20181217
  Receipt Date: 20190527
  Transmission Date: 20190711
  Serious: Yes (Other)
  Sender: FDA-Public Use
  Company Number: US-PFIZER INC-2018514080

PATIENT
  Age: 62 Year
  Sex: Female

DRUGS (2)
  1. VIAGRA [Suspect]
     Active Substance: SILDENAFIL CITRATE
     Indication: FOOD ALLERGY
  2. VIAGRA [Suspect]
     Active Substance: SILDENAFIL CITRATE
     Indication: CIRCULATORY COLLAPSE
     Dosage: 25 MG, 3X/DAY (PILLS THAT I NEED 3 TIMES A DAY EVERY DAY)

REACTIONS (7)
  - Skin lesion [Unknown]
  - Product use in unapproved indication [Unknown]
  - Scleroderma [Unknown]
  - Malaise [Unknown]
  - Off label use [Unknown]
  - Systemic lupus erythematosus [Unknown]
  - Product use issue [Unknown]
